FAERS Safety Report 12901555 (Version 2)
Quarter: 2016Q4

REPORT INFORMATION
  Report Type: Spontaneous
  Country: BR (occurrence: BR)
  Receive Date: 20161102
  Receipt Date: 20161201
  Transmission Date: 20170207
  Serious: Yes (Hospitalization, Other)
  Sender: FDA-Public Use
  Company Number: BR-ASTRAZENECA-2016SF13228

PATIENT
  Age: 996 Month
  Sex: Female
  Weight: 61 kg

DRUGS (3)
  1. SOMALGIN CARDIO [Concomitant]
     Active Substance: ASPIRIN\DIHYDROXYALUMINUM AMINOACETATE ANHYDROUS\MAGNESIUM CARBONATE
     Dosage: DAILY
     Route: 048
     Dates: start: 2006
  2. CRESTOR [Suspect]
     Active Substance: ROSUVASTATIN CALCIUM
     Indication: BLOOD CHOLESTEROL INCREASED
     Route: 048
  3. CRESTOR [Suspect]
     Active Substance: ROSUVASTATIN CALCIUM
     Indication: BLOOD CHOLESTEROL INCREASED
     Route: 048
     Dates: start: 2006, end: 201610

REACTIONS (4)
  - Pneumonia [Recovered/Resolved]
  - Blood pressure increased [Unknown]
  - Ischaemic stroke [Recovered/Resolved with Sequelae]
  - Mobility decreased [Recovered/Resolved]

NARRATIVE: CASE EVENT DATE: 201603
